FAERS Safety Report 15584412 (Version 3)
Quarter: 2018Q4

REPORT INFORMATION
  Report Type: Spontaneous
  Country: NO (occurrence: NO)
  Receive Date: 20181104
  Receipt Date: 20181129
  Transmission Date: 20190205
  Serious: Yes (Death, Other)
  Sender: FDA-Public Use
  Company Number: PHHY2018NO140349

PATIENT
  Age: 72 Year
  Sex: Male

DRUGS (5)
  1. XOFIGO [Suspect]
     Active Substance: RADIUM RA-223 DICHLORIDE
     Indication: HORMONE-REFRACTORY PROSTATE CANCER
  2. ZOLEDRONIC ACID [Suspect]
     Active Substance: ZOLEDRONIC ACID
     Indication: PROSTATE CANCER METASTATIC
  3. XOFIGO [Suspect]
     Active Substance: RADIUM RA-223 DICHLORIDE
     Indication: PROSTATE CANCER METASTATIC
     Dosage: UNK UNK, Q4W
     Route: 065
     Dates: start: 201303, end: 201508
  4. ZOLEDRONIC ACID [Suspect]
     Active Substance: ZOLEDRONIC ACID
     Indication: METASTASES TO BONE
     Dosage: UNK
     Route: 065
     Dates: start: 201103, end: 201508
  5. XOFIGO [Suspect]
     Active Substance: RADIUM RA-223 DICHLORIDE
     Indication: METASTASES TO BONE

REACTIONS (15)
  - Pathological fracture [Unknown]
  - Prostate cancer metastatic [Fatal]
  - Bone swelling [Unknown]
  - Pain in jaw [Recovered/Resolved]
  - Bone sequestrum [Unknown]
  - Pain [Recovered/Resolved]
  - Oral cavity fistula [Unknown]
  - Drug ineffective for unapproved indication [Not Recovered/Not Resolved]
  - Osteomyelitis [Recovered/Resolved]
  - Metastases to bone [Unknown]
  - Osteonecrosis of jaw [Unknown]
  - Pneumonia [Unknown]
  - Contraindicated product administered [Unknown]
  - Condition aggravated [Recovering/Resolving]
  - Off label use [Recovered/Resolved]

NARRATIVE: CASE EVENT DATE: 201602
